FAERS Safety Report 6343900-8 (Version None)
Quarter: 2009Q3

REPORT INFORMATION
  Report Type: 
  Country: None (occurrence: None)
  Receive Date: 20090908
  Receipt Date: 20090826
  Transmission Date: 20100115
  Serious: Yes (Other)
  Sender: FDA-Public Use
  Company Number: JP-PFIZER INC-2009258488

PATIENT
  Age: 42 Year

DRUGS (10)
  1. EPIRUBICIN [Suspect]
     Indication: BREAST CANCER
     Dosage: 152 MG, CYCLIC, EVERY 3 WEEKS
     Route: 042
     Dates: start: 20090515, end: 20090717
  2. EPIRUBICIN [Suspect]
     Indication: ADJUVANT THERAPY
  3. FLUOROURACIL [Suspect]
     Indication: BREAST CANCER
     Dosage: 760 MG, CYCLIC EVERY 3 WEEKS
     Route: 042
     Dates: start: 20090515, end: 20090717
  4. FLUOROURACIL [Suspect]
     Indication: ADJUVANT THERAPY
  5. ENDOXAN [Concomitant]
     Indication: ADJUVANT THERAPY
     Dosage: 760 MG, UNK
     Route: 042
     Dates: start: 20090515, end: 20090717
  6. IMIDAPRIL HYDROCHLORIDE [Concomitant]
     Dosage: UNK
     Route: 042
     Dates: start: 20090515, end: 20090717
  7. DECADRON [Concomitant]
     Dosage: UNK
     Route: 048
     Dates: start: 20090515, end: 20090720
  8. DECADRON #1 [Concomitant]
     Dosage: UNK
     Route: 042
     Dates: start: 20090515, end: 20090717
  9. RAMOSETRON HYDROCHLORIDE [Concomitant]
     Dosage: UNK
     Route: 048
     Dates: start: 20090515, end: 20090608
  10. MAGNESIUM OXIDE [Concomitant]
     Dosage: UNK
     Route: 048
     Dates: start: 20090515

REACTIONS (3)
  - DYSGEUSIA [None]
  - TONGUE DISCOLOURATION [None]
  - TONGUE OEDEMA [None]
